FAERS Safety Report 7053041-2 (Version None)
Quarter: 2010Q4

REPORT INFORMATION
  Report Type: 
  Country: None (occurrence: None)
  Receive Date: 20101020
  Receipt Date: 20101011
  Transmission Date: 20110411
  Serious: Yes (Hospitalization, Other)
  Sender: FDA-Public Use
  Company Number: US-ELI_LILLY_AND_COMPANY-US201007006472

PATIENT
  Sex: Female

DRUGS (12)
  1. HUMALOG MIX 75/25 [Suspect]
     Indication: DIABETES MELLITUS
     Dosage: UNK, AS NEEDED
  2. HUMALOG MIX 75/25 [Suspect]
     Dosage: 10 U, EACH MORNING
  3. HUMALOG MIX 75/25 [Suspect]
     Dosage: 8 U, EACH EVENING
  4. HUMALOG MIX 75/25 [Suspect]
     Dosage: 12 U, EACH MORNING
  5. HUMALOG MIX 75/25 [Suspect]
     Dosage: 10 U, EACH EVENING
  6. HUMALOG MIX 75/25 [Suspect]
     Dosage: UNK, AS NEEDED
  7. HUMALOG MIX 75/25 [Suspect]
     Dosage: UNK, AS NEEDED
  8. METFORMIN HCL [Concomitant]
     Dosage: 2 D/F, DAILY (1/D)
  9. COUMADIN [Concomitant]
     Indication: DEEP VEIN THROMBOSIS
  10. CORTICOSTEROIDS, DERMATOLOGICAL PREPARATIONS [Concomitant]
     Indication: DERMATITIS
  11. MACRODANTIN [Concomitant]
  12. SINGULAIR [Concomitant]

REACTIONS (3)
  - COLON CANCER STAGE IV [None]
  - DRUG DISPENSING ERROR [None]
  - HYPOAESTHESIA [None]
